FAERS Safety Report 23251284 (Version 2)
Quarter: 2024Q3

REPORT INFORMATION
  Report Type: Spontaneous
  Country: US (occurrence: US)
  Receive Date: 20231201
  Receipt Date: 20240701
  Transmission Date: 20241016
  Serious: Yes (Hospitalization, Other)
  Sender: SANOFI AVENTIS
  Company Number: US-SA-SAC20231128001057

PATIENT
  Age: 66 Year
  Sex: Male

DRUGS (2)
  1. FABRAZYME [Suspect]
     Active Substance: AGALSIDASE BETA
     Indication: Fabry^s disease
     Dosage: 95 MG (IN 250 ML NORMAL SALINE (TOTAL VOLUME), QOW (STRENGTH: 35 MG AND 5 MG)
     Route: 042
     Dates: start: 201609, end: 202311
  2. FABRAZYME [Suspect]
     Active Substance: AGALSIDASE BETA
     Dosage: 95 MG, QOW (STRENGTH: 35 MG AND 5 MG)
     Route: 042
     Dates: start: 2023

REACTIONS (3)
  - Loss of consciousness [Unknown]
  - Atrial fibrillation [Unknown]
  - Cardiac pacemaker insertion [Unknown]

NARRATIVE: CASE EVENT DATE: 20231121
